FAERS Safety Report 10884300 (Version 4)
Quarter: 2015Q3

REPORT INFORMATION
  Report Type: Report from Study
  Country: GB (occurrence: None)
  Receive Date: 20150227
  Receipt Date: 20150715
  Transmission Date: 20151125
  Serious: Yes (Other)
  Sender: FDA-Public Use
  Company Number: 2014MPI01550

PATIENT
  Sex: Female
  Weight: 55 kg

DRUGS (2)
  1. PREDNISOLONE (PREDNISOLONE ACETATE) [Concomitant]
     Active Substance: PREDNISOLONE ACETATE
  2. ADCETRIS [Suspect]
     Active Substance: BRENTUXIMAB VEDOTIN
     Indication: HODGKIN^S DISEASE
     Route: 042
     Dates: start: 20140801, end: 20141031

REACTIONS (7)
  - Autoimmune haemolytic anaemia [None]
  - Neutropenia [None]
  - Hodgkin^s disease [None]
  - Fatigue [None]
  - Platelet count decreased [None]
  - Malignant neoplasm progression [None]
  - Cold type haemolytic anaemia [None]

NARRATIVE: CASE EVENT DATE: 20141119
